FAERS Safety Report 13589800 (Version 1)
Quarter: 2017Q2

REPORT INFORMATION
  Report Type: Spontaneous
  Country: US (occurrence: US)
  Receive Date: 20170528
  Receipt Date: 20170528
  Transmission Date: 20170830
  Serious: Yes (Life-Threatening, Disabling, Other)
  Sender: FDA-Public Use
  Company Number: None

PATIENT
  Age: 50 Year
  Sex: Female
  Weight: 73.8 kg

DRUGS (5)
  1. SYMBICORT [Suspect]
     Active Substance: BUDESONIDE\FORMOTEROL FUMARATE DIHYDRATE
     Indication: CHRONIC OBSTRUCTIVE PULMONARY DISEASE
     Dosage: OTHER STRENGTH:MCG;QUANTITY:2 PUFF(S);?
     Route: 055
     Dates: start: 20150611, end: 20170527
  2. METFORMIN [Concomitant]
     Active Substance: METFORMIN HYDROCHLORIDE
  3. XOPENIX INHALER [Concomitant]
  4. VENTALIN INHALER [Concomitant]
  5. PRILOSEC [Concomitant]
     Active Substance: OMEPRAZOLE MAGNESIUM

REACTIONS (9)
  - Depression [None]
  - Rib fracture [None]
  - Vision blurred [None]
  - Arthralgia [None]
  - Weight increased [None]
  - Ulcer [None]
  - Glucose tolerance impaired [None]
  - Asthenia [None]
  - Cardiac disorder [None]

NARRATIVE: CASE EVENT DATE: 20150611
